FAERS Safety Report 4944680-0 (Version None)
Quarter: 2006Q1

REPORT INFORMATION
  Report Type: 
  Country: None (occurrence: None)
  Receive Date: 20060113
  Receipt Date: 20050311
  Transmission Date: 20060701
  Serious: Yes (Hospitalization, Other)
  Sender: FDA-Public Use
  Company Number: HQWYE966209SEP04

PATIENT
  Age: 70 Year
  Sex: Female
  Weight: 61.29 kg

DRUGS (7)
  1. PREMPRO [Suspect]
     Indication: HORMONE REPLACEMENT THERAPY
  2. ESTRADERM [Suspect]
     Dosage: 0.05 MG TRANSDERMAL
     Route: 062
     Dates: start: 19870101
  3. PREMARIN [Suspect]
     Indication: OESTROGEN REPLACEMENT THERAPY
     Dosage: 0.625MG, ORAL
     Route: 048
     Dates: start: 19820101, end: 19870101
  4. PROVERA [Suspect]
     Indication: HORMONE REPLACEMENT THERAPY
  5. SYNTHROID [Concomitant]
  6. PRINIVIL [Concomitant]
  7. FOSAMAX [Concomitant]

REACTIONS (1)
  - BREAST CANCER [None]
